FAERS Safety Report 12292981 (Version 1)
Quarter: 2016Q2

REPORT INFORMATION
  Report Type: Report from Study
  Country: US (occurrence: US)
  Receive Date: 20160421
  Receipt Date: 20160421
  Transmission Date: 20160815
  Serious: No
  Sender: FDA-Public Use
  Company Number: US-AMGEN-USASL2016045408

PATIENT
  Age: 71 Year
  Sex: Female

DRUGS (1)
  1. REPATHA [Suspect]
     Active Substance: EVOLOCUMAB
     Indication: HYPERCHOLESTEROLAEMIA
     Dosage: 140 MG, Q2WK
     Route: 065
     Dates: start: 20160316

REACTIONS (8)
  - Oral pruritus [Unknown]
  - Gingival pruritus [Unknown]
  - Oral discomfort [Unknown]
  - Aphthous ulcer [Unknown]
  - Gingival swelling [Unknown]
  - Noninfective gingivitis [Unknown]
  - Lip swelling [Unknown]
  - Oral pain [Unknown]

NARRATIVE: CASE EVENT DATE: 2016
